FAERS Safety Report 7566778 (Version 8)
Quarter: 2013Q2

REPORT INFORMATION
  Report Type: Report from Study
  Country: AU (occurrence: AU)
  Receive Date: 20100830
  Receipt Date: 20130411
  Transmission Date: 20140414
  Serious: Yes (Life-Threatening, Hospitalization, Other)
  Sender: FDA-Public Use
  Company Number: PHHY2010AU54946

PATIENT
  Age: 48 Year
  Sex: Male

DRUGS (11)
  1. CLOZARIL [Suspect]
     Dosage: 300 MG, UNK
     Route: 048
     Dates: start: 19940510
  2. CLOZARIL [Suspect]
     Dosage: 400 MG, UNK
  3. CLOZARIL [Suspect]
     Dosage: UNK
  4. AROPAX [Concomitant]
     Dosage: 20 MG MANE
  5. VALPROATE SODIUM [Concomitant]
     Dosage: 20 MG MANE
  6. BIPERIDEN [Concomitant]
     Dosage: 4 MG NOCTE
  7. TIOTROPIUM [Concomitant]
     Dosage: 18 UG, DAILY
  8. SALMETEROL [Concomitant]
     Dosage: UNK 2 PUFFS
  9. FLUTICASONE [Concomitant]
     Dosage: UNK 2 PUFFS
  10. SALBUTAMOL [Concomitant]
     Dosage: 100 UG, UNK
  11. DOXYCYCLINE [Concomitant]
     Dosage: 100 UG, DAILY
     Route: 048

REACTIONS (16)
  - Pneumothorax [Unknown]
  - Pneumonia [Recovering/Resolving]
  - Schizophrenia [Unknown]
  - Fall [Unknown]
  - Cellulitis [Recovered/Resolved]
  - C-reactive protein increased [Unknown]
  - Monocyte count increased [Unknown]
  - Haemoglobin decreased [Unknown]
  - Lymphocyte count decreased [Unknown]
  - Mean cell haemoglobin decreased [Unknown]
  - Neutrophil count increased [Unknown]
  - Chronic obstructive pulmonary disease [Recovered/Resolved]
  - Dyspnoea [Unknown]
  - Respiratory rate increased [Unknown]
  - Oedema peripheral [Unknown]
  - Respiratory failure [Unknown]
